FAERS Safety Report 5339090-0 (Version None)
Quarter: 2007Q2

REPORT INFORMATION
  Report Type: 
  Country: None (occurrence: None)
  Receive Date: 20070530
  Receipt Date: 20070518
  Transmission Date: 20071010
  Serious: Yes (Hospitalization, Other)
  Sender: FDA-Public Use
  Company Number: US-PFIZER INC-2007041015

PATIENT
  Sex: Male
  Weight: 102.72 kg

DRUGS (15)
  1. CHANTIX [Suspect]
     Indication: SMOKING CESSATION THERAPY
  2. COLACE [Concomitant]
  3. THIAMINE [Concomitant]
  4. PRENATAL VITAMINS [Concomitant]
  5. LIBRIUM [Concomitant]
  6. CLONIDINE [Concomitant]
  7. MAALOX FAST BLOCKER [Concomitant]
  8. ZANTAC [Concomitant]
  9. ZOLOFT [Concomitant]
  10. INDERAL [Concomitant]
  11. ZESTRIL [Concomitant]
  12. POTASSIUM CHLORIDE [Concomitant]
  13. NEXIUM [Concomitant]
  14. LORAZEPAM [Concomitant]
  15. TRIAMCINOLONE [Concomitant]
     Route: 061

REACTIONS (5)
  - AMNESIA [None]
  - BLINDNESS [None]
  - CONFUSIONAL STATE [None]
  - HYPOAESTHESIA [None]
  - SPEECH DISORDER [None]
